FAERS Safety Report 8858659 (Version 2)
Quarter: 2012Q4

REPORT INFORMATION
  Report Type: 
  Country: US (occurrence: US)
  Receive Date: 20121024
  Receipt Date: 20121212
  Transmission Date: 20130627
  Serious: No
  Sender: FDA-Public Use
  Company Number: US-BAYER-2012-110762

PATIENT
  Age: 61 Year
  Sex: Female

DRUGS (1)
  1. EOVIST [Suspect]
     Indication: NUCLEAR MAGNETIC RESONANCE IMAGING LIVER
     Dosage: 8 ml, ONCE
     Dates: start: 20121019, end: 20121019

REACTIONS (7)
  - Chest discomfort [None]
  - Dizziness [Not Recovered/Not Resolved]
  - Hyperventilation [None]
  - Headache [None]
  - Panic attack [None]
  - Heart rate increased [None]
  - Dyspnoea [None]
